FAERS Safety Report 17055274 (Version 1)
Quarter: 2019Q4

REPORT INFORMATION
  Report Type: Spontaneous
  Country: US (occurrence: US)
  Receive Date: 20191120
  Receipt Date: 20191120
  Transmission Date: 20200122
  Serious: No
  Sender: FDA-Public Use
  Company Number: US-JAZZ-2019-US-011401

PATIENT
  Sex: Female

DRUGS (4)
  1. THIOTEPA. [Concomitant]
     Active Substance: THIOTEPA
  2. DEFITELIO [Suspect]
     Active Substance: DEFIBROTIDE SODIUM
     Indication: PROPHYLAXIS
     Dosage: 6.25 MG/KG, QID
     Route: 042
  3. CYCLOPHOSPHAMIDE. [Concomitant]
     Active Substance: CYCLOPHOSPHAMIDE
  4. BUSULFAN. [Concomitant]
     Active Substance: BUSULFAN

REACTIONS (1)
  - Off label use [Unknown]
